FAERS Safety Report 18906966 (Version 1)
Quarter: 2021Q1

REPORT INFORMATION
  Report Type: Spontaneous
  Country: GB (occurrence: GB)
  Receive Date: 20210217
  Receipt Date: 20210217
  Transmission Date: 20210420
  Serious: Yes (Other)
  Sender: FDA-Public Use
  Company Number: GB-009507513-2102GBR006571

PATIENT
  Age: 45 Year
  Sex: Female
  Weight: 52.61 kg

DRUGS (3)
  1. MOMETASONE FUROATE. [Suspect]
     Active Substance: MOMETASONE FUROATE
     Indication: ILL-DEFINED DISORDER
     Dosage: 2 SPRAYS PER NOSTRIL
     Route: 045
     Dates: start: 20210129, end: 20210211
  2. MOMETASONE FUROATE. [Suspect]
     Active Substance: MOMETASONE FUROATE
     Indication: POLYP
  3. MOMETASONE FUROATE. [Suspect]
     Active Substance: MOMETASONE FUROATE
     Indication: RHINITIS

REACTIONS (1)
  - Urticaria [Not Recovered/Not Resolved]

NARRATIVE: CASE EVENT DATE: 20210203
